FAERS Safety Report 5502068-8 (Version None)
Quarter: 2007Q4

REPORT INFORMATION
  Report Type: 
  Country: None (occurrence: None)
  Receive Date: 20071030
  Receipt Date: 20071019
  Transmission Date: 20080405
  Serious: Yes (Other)
  Sender: FDA-Public Use
  Company Number: US-JNJFOC-20071005202

PATIENT
  Age: 13 Year
  Sex: Female

DRUGS (12)
  1. REMICADE [Suspect]
     Indication: JUVENILE ARTHRITIS
     Route: 042
  2. ADVAIR DISKUS 100/50 [Concomitant]
  3. ZANTAC [Concomitant]
  4. SINGULAIR [Concomitant]
  5. FOLIC ACID [Concomitant]
  6. HYDROCHLOROTHIAZIDE [Concomitant]
  7. METHOTREXATE [Concomitant]
  8. ALLERGY SHOTS [Concomitant]
  9. ZYRTEC [Concomitant]
  10. ALBUTEROL [Concomitant]
     Route: 055
  11. CALCIUM SUPPLEMENTS [Concomitant]
  12. NAPROSON [Concomitant]

REACTIONS (1)
  - MENORRHAGIA [None]
